FAERS Safety Report 23230230 (Version 1)
Quarter: 2023Q4

REPORT INFORMATION
  Report Type: Spontaneous
  Country: US (occurrence: None)
  Receive Date: 20231122
  Receipt Date: 20231122
  Transmission Date: 20240110
  Serious: Yes (Disabling, Other)
  Sender: FDA-Public Use
  Company Number: None

PATIENT
  Age: 47 Year
  Sex: Female
  Weight: 52.65 kg

DRUGS (8)
  1. ARIPIPRAZOLE [Suspect]
     Active Substance: ARIPIPRAZOLE
     Indication: Delusion
     Dosage: OTHER QUANTITY : 30 TABLET(S);?FREQUENCY : DAILY;?
     Route: 048
  2. ABILIFY [Concomitant]
     Active Substance: ARIPIPRAZOLE
  3. CYANOCOBALAMIN\DEXPANTHENOL\NIACINAMIDE\PYRIDOXINE HYDROCHLORIDE\RIBOF [Concomitant]
     Active Substance: CYANOCOBALAMIN\DEXPANTHENOL\NIACINAMIDE\PYRIDOXINE HYDROCHLORIDE\RIBOFLAVIN 5^-PHOSPHATE SODIUM\THIA
  4. FISH OIL [Concomitant]
     Active Substance: FISH OIL
  5. CALCIUM [Concomitant]
     Active Substance: CALCIUM
  6. MAGNESIUM [Concomitant]
     Active Substance: MAGNESIUM
  7. ZINC [Concomitant]
     Active Substance: PYRITHIONE ZINC\ZINC\ZINC CHLORIDE
  8. VITAMINS [Concomitant]
     Active Substance: VITAMINS

REACTIONS (15)
  - Insomnia [None]
  - Palpitations [None]
  - Hypophagia [None]
  - Memory impairment [None]
  - Stress [None]
  - Feeling abnormal [None]
  - Fatigue [None]
  - Nervousness [None]
  - Nutritional condition abnormal [None]
  - Alopecia [None]
  - Urticaria [None]
  - Vomiting [None]
  - Anxiety [None]
  - Pollakiuria [None]
  - Frequent bowel movements [None]

NARRATIVE: CASE EVENT DATE: 20200311
